FAERS Safety Report 26135635 (Version 1)
Quarter: 2025Q4

REPORT INFORMATION
  Report Type: Spontaneous
  Country: EU (occurrence: EU)
  Receive Date: 20251209
  Receipt Date: 20251209
  Transmission Date: 20260117
  Serious: Yes (Life-Threatening, Hospitalization, Other)
  Sender: FRESENIUS KABI
  Company Number: None

PATIENT
  Age: 78 Year
  Sex: Male
  Weight: 65 kg

DRUGS (13)
  1. IRINOTECAN [Suspect]
     Active Substance: IRINOTECAN
     Indication: Rectal adenocarcinoma
     Dosage: 180MG/M? (315MG/DOSE) EVERY 14 DAYS
     Route: 042
     Dates: start: 20250113, end: 20251008
  2. DEXAMETHASONE [Concomitant]
     Active Substance: DEXAMETHASONE
     Indication: Product used for unknown indication
     Dosage: 12 MG - LAST CYCLE OF CHEMOTHERAPY (FOLFIRI PROTOCOL) ON 08/10/25
     Route: 048
     Dates: start: 20251008
  3. Akynzeo 300 MG/0.5 MG [Concomitant]
     Indication: Product used for unknown indication
     Dosage: UNK
  4. ATROPINE SULFATE  .25 mg [Concomitant]
     Indication: Product used for unknown indication
     Dosage: UNK
  5. FLUOROURACIL [Concomitant]
     Active Substance: FLUOROURACIL
     Indication: Product used for unknown indication
     Dosage: 400MG/M? (700MG) PERFUSION IV - J1
     Route: 042
  6. FLUOROURACIL [Concomitant]
     Active Substance: FLUOROURACIL
     Dosage: 2400MG/M? (4200MG) PERFUSION IV CONTINUOUS FOR 50H
  7. ELIQUIS [Concomitant]
     Active Substance: APIXABAN
     Indication: Product used for unknown indication
     Dosage: MORNING/EVENING
  8. Pantomed 20 MG [Concomitant]
     Indication: Product used for unknown indication
     Dosage: MORNING
  9. LOSARTAN [Concomitant]
     Active Substance: LOSARTAN
     Indication: Product used for unknown indication
     Dosage: MORNING/EVENING
  10. ROSUVASTATIN [Concomitant]
     Active Substance: ROSUVASTATIN
     Indication: Product used for unknown indication
     Dosage: EVENING
  11. LERCANIDIPINE HYDROCHLORIDE [Concomitant]
     Active Substance: LERCANIDIPINE HYDROCHLORIDE
     Indication: Product used for unknown indication
     Dosage: EVENING
  12. STEOVIT Forte [Concomitant]
     Indication: Product used for unknown indication
  13. CHOLECALCIFEROL [Concomitant]
     Active Substance: CHOLECALCIFEROL
     Indication: Product used for unknown indication

REACTIONS (5)
  - Colitis [Not Recovered/Not Resolved]
  - Acute kidney injury [Not Recovered/Not Resolved]
  - Neutropenia [Not Recovered/Not Resolved]
  - C-reactive protein increased [Not Recovered/Not Resolved]
  - Gastrointestinal obstruction [Not Recovered/Not Resolved]

NARRATIVE: CASE EVENT DATE: 20251009
